FAERS Safety Report 6760693-0 (Version None)
Quarter: 2010Q2

REPORT INFORMATION
  Report Type: 
  Country: None (occurrence: None)
  Receive Date: 20100607
  Receipt Date: 20100607
  Transmission Date: 20101027
  Serious: Yes (Hospitalization)
  Sender: FDA-Public Use
  Company Number: None

PATIENT
  Age: 63 Year
  Sex: Male
  Weight: 70 kg

DRUGS (2)
  1. CIPROFLOXACIN [Suspect]
     Indication: APPENDICITIS
     Dosage: 500 MG BID PO
     Route: 048
     Dates: start: 20100421, end: 20100429
  2. CEFOXITIN [Suspect]
     Indication: APPENDICITIS
     Dosage: 2 GM TID IV
     Route: 042
     Dates: start: 20100416, end: 20100421

REACTIONS (2)
  - CHEST PAIN [None]
  - CLOSTRIDIUM DIFFICILE COLITIS [None]
